FAERS Safety Report 5810025-7 (Version None)
Quarter: 2008Q3

REPORT INFORMATION
  Report Type: 
  Country: None (occurrence: None)
  Receive Date: 20080715
  Receipt Date: 20080707
  Transmission Date: 20090109
  Serious: Yes (Hospitalization, Congenital Anomaly)
  Sender: FDA-Public Use
  Company Number: A0680876A

PATIENT
  Sex: Female
  Weight: 1.6 kg

DRUGS (5)
  1. PAXIL [Suspect]
     Indication: POSTPARTUM DEPRESSION
     Dates: start: 20020201, end: 20021201
  2. TEGRETOL-XR [Concomitant]
     Dates: start: 19960101
  3. VITAMIN TAB [Concomitant]
  4. FOLIC ACID [Concomitant]
  5. ORTHO CYCLEN-21 [Concomitant]

REACTIONS (9)
  - AORTA HYPOPLASIA [None]
  - AORTIC STENOSIS [None]
  - ATRIAL SEPTAL DEFECT [None]
  - COARCTATION OF THE AORTA [None]
  - DRUG EXPOSURE DURING PREGNANCY [None]
  - HYPOPLASTIC LEFT HEART SYNDROME [None]
  - PATENT DUCTUS ARTERIOSUS [None]
  - PULMONARY ARTERY STENOSIS [None]
  - UNIVENTRICULAR HEART [None]
